FAERS Safety Report 5007690-3 (Version None)
Quarter: 2006Q2

REPORT INFORMATION
  Report Type: 
  Country: None (occurrence: None)
  Receive Date: 20060522
  Receipt Date: 20060511
  Transmission Date: 20061013
  Serious: Yes (Hospitalization)
  Sender: FDA-Public Use
  Company Number: US-BRISTOL-MYERS SQUIBB COMPANY-13375050

PATIENT
  Age: 80 Year
  Sex: Female
  Weight: 60 kg

DRUGS (9)
  1. CARBOPLATIN [Suspect]
     Indication: SMALL CELL LUNG CANCER STAGE UNSPECIFIED
     Route: 042
     Dates: start: 20060419, end: 20060419
  2. IRINOTECAN HCL [Suspect]
     Indication: SMALL CELL LUNG CANCER STAGE UNSPECIFIED
     Route: 042
     Dates: start: 20060419, end: 20060419
  3. PROMETHAZINE [Concomitant]
  4. LEVOTHYROXINE SODIUM [Concomitant]
  5. LISINOPRIL [Concomitant]
  6. ATENOLOL [Concomitant]
  7. NEXIUM [Concomitant]
  8. NORVASC [Concomitant]
  9. KLOR-CON [Concomitant]

REACTIONS (5)
  - DEHYDRATION [None]
  - FATIGUE [None]
  - HYPOMAGNESAEMIA [None]
  - HYPOTENSION [None]
  - ORAL INTAKE REDUCED [None]
